FAERS Safety Report 8825162 (Version 2)
Quarter: 2012Q4

REPORT INFORMATION
  Report Type: 
  Country: CA (occurrence: CA)
  Receive Date: 20121004
  Receipt Date: 20121207
  Transmission Date: 20130627
  Serious: Yes (Hospitalization)
  Sender: FDA-Public Use
  Company Number: CA-GLAXOSMITHKLINE-A0988852A

PATIENT
  Age: 70 Year
  Sex: Female

DRUGS (10)
  1. VOTRIENT [Suspect]
     Indication: LEIOMYOSARCOMA
     Dosage: 800MG Per day
     Route: 048
     Dates: start: 20120718, end: 20120802
  2. INSULIN NPH [Concomitant]
     Dosage: 52UNIT At night
     Route: 065
  3. LIPITOR [Concomitant]
     Dosage: 40MG Per day
     Route: 065
  4. HYDROCHLOROTHIAZIDE [Concomitant]
     Route: 065
  5. MICARDIS [Concomitant]
     Route: 065
  6. EZETROL [Concomitant]
     Route: 065
  7. NIACIN [Concomitant]
     Route: 065
  8. GARLIC TABLETS [Concomitant]
     Route: 065
  9. FENTANYL [Concomitant]
     Dosage: 12MG Every 3 days
     Route: 065
  10. DILAUDID [Concomitant]
     Dosage: 1MG As required
     Route: 065

REACTIONS (5)
  - Radiotherapy [Unknown]
  - Fatigue [Unknown]
  - Hypertension [Unknown]
  - Hypersomnia [Unknown]
  - Malignant neoplasm progression [Not Recovered/Not Resolved]
